FAERS Safety Report 15498704 (Version 3)
Quarter: 2018Q4

REPORT INFORMATION
  Report Type: Spontaneous
  Country: US (occurrence: US)
  Receive Date: 20181015
  Receipt Date: 20181121
  Transmission Date: 20190205
  Serious: Yes (Other)
  Sender: FDA-Public Use
  Company Number: US-BAYER-2018-191852

PATIENT
  Age: 30 Year
  Sex: Female
  Weight: 104.31 kg

DRUGS (1)
  1. SKYLA [Suspect]
     Active Substance: LEVONORGESTREL
     Indication: CONTRACEPTION
     Dosage: 14 MCG/24HR, CONT
     Route: 015
     Dates: start: 20160907, end: 20180927

REACTIONS (6)
  - Pain [None]
  - Abdominal pain lower [None]
  - Abortion spontaneous [None]
  - Drug ineffective [None]
  - Genital haemorrhage [None]
  - Pregnancy with contraceptive device [None]

NARRATIVE: CASE EVENT DATE: 201809
